FAERS Safety Report 6763598-4 (Version None)
Quarter: 2010Q2

REPORT INFORMATION
  Report Type: 
  Country: None (occurrence: None)
  Receive Date: 20100610
  Receipt Date: 20100528
  Transmission Date: 20101027
  Serious: Yes (Other)
  Sender: FDA-Public Use
  Company Number: US-ELI_LILLY_AND_COMPANY-US201005007816

PATIENT
  Sex: Male
  Weight: 122.45 kg

DRUGS (5)
  1. BYETTA [Suspect]
     Indication: TYPE 2 DIABETES MELLITUS
     Dosage: 5 UG, 2/D
     Route: 058
     Dates: start: 20050101
  2. BYETTA [Suspect]
     Dosage: 10 UG, 2/D
     Route: 058
     Dates: end: 20100527
  3. HUMALOG [Concomitant]
     Dosage: 100 U, EACH EVENING
  4. GLUCOPHAGE [Concomitant]
     Dosage: 1700 MG, UNK
  5. GLIPIZIDE [Concomitant]
     Dosage: 10 MG, UNK

REACTIONS (7)
  - BLOOD GLUCOSE DECREASED [None]
  - DECREASED APPETITE [None]
  - FALL [None]
  - HYPOGLYCAEMIA UNAWARENESS [None]
  - HYPOGLYCAEMIC UNCONSCIOUSNESS [None]
  - OFF LABEL USE [None]
  - VOMITING [None]
